FAERS Safety Report 21448357 (Version 1)
Quarter: 2022Q4

REPORT INFORMATION
  Report Type: Report from Study
  Country: CO (occurrence: CO)
  Receive Date: 20221013
  Receipt Date: 20221013
  Transmission Date: 20230113
  Serious: Yes (Hospitalization, Other)
  Sender: FDA-Public Use
  Company Number: CO-ABBVIE-4151321

PATIENT
  Sex: Female

DRUGS (1)
  1. ZEMPLAR [Suspect]
     Active Substance: PARICALCITOL
     Indication: Hyperparathyroidism
     Dosage: 2 MICROGRAM
     Route: 048
     Dates: start: 20160616, end: 20210122

REACTIONS (5)
  - Cyst [Recovering/Resolving]
  - Venous thrombosis [Recovering/Resolving]
  - Blood pressure abnormal [Recovering/Resolving]
  - Blood glucose abnormal [Recovering/Resolving]
  - Pain [Recovering/Resolving]

NARRATIVE: CASE EVENT DATE: 20220101
